FAERS Safety Report 4949736-4 (Version None)
Quarter: 2006Q1

REPORT INFORMATION
  Report Type: 
  Country: None (occurrence: None)
  Receive Date: 20060316
  Receipt Date: 20060308
  Transmission Date: 20060701
  Serious: Yes (Hospitalization)
  Sender: FDA-Public Use
  Company Number: 200610671BWH

PATIENT
  Age: 66 Year
  Sex: Male
  Weight: 65.318 kg

DRUGS (6)
  1. NEXAVAR [Suspect]
     Indication: RENAL CELL CARCINOMA STAGE UNSPECIFIED
     Dosage: 400 MG, BID, ORAL
     Route: 048
     Dates: start: 20060120, end: 20060127
  2. SYNTHROID [Concomitant]
  3. PROTONIX [Concomitant]
  4. DETROL LA [Concomitant]
  5. FLOMAX [Concomitant]
  6. VITAMINS NOS [Concomitant]

REACTIONS (10)
  - ADVERSE DRUG REACTION [None]
  - ANOREXIA [None]
  - ASTHENIA [None]
  - CONSTIPATION [None]
  - EYE SWELLING [None]
  - OEDEMA PERIPHERAL [None]
  - RASH [None]
  - RASH GENERALISED [None]
  - SKIN EXFOLIATION [None]
  - SWELLING [None]
